FAERS Safety Report 9529452 (Version 5)
Quarter: 2013Q4

REPORT INFORMATION
  Report Type: Spontaneous
  Country: JP (occurrence: JP)
  Receive Date: 20130917
  Receipt Date: 20131226
  Transmission Date: 20140711
  Serious: Yes (Other)
  Sender: FDA-Public Use
  Company Number: PHHY2013JP100092

PATIENT
  Age: 28 Year
  Sex: Female

DRUGS (3)
  1. NEORAL [Suspect]
     Indication: HAEMOLYTIC ANAEMIA
     Dosage: 250 MG, DAILY
     Route: 048
  2. PREDNISOLONE [Suspect]
     Indication: PUSTULAR PSORIASIS
     Dosage: 30 MG
     Route: 048
  3. ULTRAVIOLET-B TREATMENT [Suspect]
     Indication: PUSTULAR PSORIASIS

REACTIONS (5)
  - Acquired haemophilia [Unknown]
  - Pustular psoriasis [Unknown]
  - Disease progression [Unknown]
  - Maternal exposure during pregnancy [Unknown]
  - Delivery [Unknown]
